FAERS Safety Report 26128296 (Version 2)
Quarter: 2025Q4

REPORT INFORMATION
  Report Type: Spontaneous
  Country: EU (occurrence: EU)
  Receive Date: 20251207
  Receipt Date: 20251215
  Transmission Date: 20260117
  Serious: Yes (Other)
  Sender: ALEXION PHARMACEUTICALS
  Company Number: EU-AstraZeneca-CH-01007257A

PATIENT
  Sex: Male

DRUGS (3)
  1. TEZEPELUMAB [Interacting]
     Active Substance: TEZEPELUMAB
     Dosage: UNK
     Route: 065
  2. TEZEPELUMAB [Interacting]
     Active Substance: TEZEPELUMAB
  3. WEGOVY [Interacting]
     Active Substance: SEMAGLUTIDE
     Dosage: UNK
     Route: 065

REACTIONS (9)
  - Syncope [Unknown]
  - Headache [Unknown]
  - Asthenia [Unknown]
  - Vision blurred [Unknown]
  - Dyspnoea [Unknown]
  - Poor quality sleep [Unknown]
  - Nausea [Unknown]
  - Palpitations [Unknown]
  - Drug interaction [Unknown]
